FAERS Safety Report 10881755 (Version 2)
Quarter: 2015Q2

REPORT INFORMATION
  Report Type: Spontaneous
  Country: US (occurrence: US)
  Receive Date: 20150303
  Receipt Date: 20150417
  Transmission Date: 20150821
  Serious: Yes (Death)
  Sender: FDA-Public Use
  Company Number: US-PFIZER INC-2014363363

PATIENT
  Age: 71 Year
  Sex: Male

DRUGS (11)
  1. OXYCODONE [Concomitant]
     Active Substance: OXYCODONE
     Dosage: 20 MG (EXTENDED RELEASE 12 HR) TWICE A DAY
     Route: 048
     Dates: start: 20141229
  2. HOMATROPINE/HYDROCODONE [Concomitant]
     Dosage: 5 ML, 4X/DAY (HOMATROPINE-1.5 MG/HYDROCODONE-5 MG)/ 5ML AS NEEDED
     Route: 048
     Dates: start: 20141209
  3. TORISEL [Suspect]
     Active Substance: TEMSIROLIMUS
     Dosage: UNK
     Route: 042
     Dates: start: 20141223, end: 20141229
  4. DIPHENHYDRAMINE [Concomitant]
     Active Substance: DIPHENHYDRAMINE
     Dosage: 25 MG, ONCE
     Route: 042
     Dates: start: 20141223, end: 20141223
  5. ATENOLOL. [Concomitant]
     Active Substance: ATENOLOL
     Dosage: 50MG AS DIRECTED
     Route: 048
     Dates: start: 20000101
  6. OXYCODONE [Concomitant]
     Active Substance: OXYCODONE
     Dosage: 10 MG, EVERY 4 HRS
     Route: 048
     Dates: start: 20141229
  7. LISINOPRIL. [Concomitant]
     Active Substance: LISINOPRIL
     Dosage: 40 MG AS DIRECTED
     Route: 048
     Dates: start: 20000101
  8. TORISEL [Suspect]
     Active Substance: TEMSIROLIMUS
     Indication: RENAL CANCER
     Dosage: 25 MG, UNK
     Route: 042
     Dates: start: 20141223, end: 20141223
  9. DRONABINOL. [Concomitant]
     Active Substance: DRONABINOL
     Dosage: 2.5 MG, 2X/DAY
     Route: 048
     Dates: start: 20141215
  10. NORMAL SALINE [Concomitant]
     Active Substance: SODIUM CHLORIDE
     Dosage: 1 L, ONCE
     Route: 042
     Dates: start: 20141223, end: 20141223
  11. SIMVASTATIN. [Concomitant]
     Active Substance: SIMVASTATIN
     Dosage: 40MG AS DIRECTED
     Route: 048
     Dates: start: 20000101

REACTIONS (1)
  - Death [Fatal]

NARRATIVE: CASE EVENT DATE: 20150130
